FAERS Safety Report 4680369-3 (Version None)
Quarter: 2005Q2

REPORT INFORMATION
  Report Type: 
  Country: None (occurrence: None)
  Receive Date: 20050601
  Receipt Date: 20050516
  Transmission Date: 20051028
  Serious: Yes (Hospitalization)
  Sender: FDA-Public Use
  Company Number: 220001E05SWE

PATIENT
  Age: 73 Year
  Sex: Male

DRUGS (10)
  1. SAIZEN [Suspect]
     Indication: CARDIAC FAILURE CHRONIC
     Dosage: 2.1 IU, 1 IN 2 DAYS, SUBCUTANEOUS
     Route: 058
     Dates: start: 20040929, end: 20050515
  2. SAIZEN [Suspect]
     Dosage: 0.7 MG, 1 IN 2 DAYS, SUBCUTANEOUS
     Route: 058
     Dates: start: 20050517
  3. ACETYLSALICYLIC ACID [Concomitant]
  4. ATENOLOL [Concomitant]
  5. AZATHIOPRINE [Concomitant]
  6. FUROSEMIDE [Concomitant]
  7. MESALAMINE [Concomitant]
  8. SIMVASTATIN [Concomitant]
  9. LOSARTAN POTASSIUM [Concomitant]
  10. NITROGLYCERIN [Concomitant]

REACTIONS (6)
  - CARDIAC FAILURE ACUTE [None]
  - EXCITABILITY [None]
  - HYPERTENSION [None]
  - LEFT VENTRICULAR FAILURE [None]
  - MYOCARDIAL INFARCTION [None]
  - PULMONARY OEDEMA [None]
